FAERS Safety Report 7590435-0 (Version None)
Quarter: 2011Q3

REPORT INFORMATION
  Report Type: 
  Country: None (occurrence: None)
  Receive Date: 20110705
  Receipt Date: 20110624
  Transmission Date: 20111222
  Serious: Yes (Hospitalization, Other)
  Sender: FDA-Public Use
  Company Number: US-BAYER-2011-004874

PATIENT
  Sex: Female
  Weight: 100 kg

DRUGS (4)
  1. NSAID'S [Concomitant]
     Dosage: UNK
     Dates: start: 20090201
  2. DROSPIRENONE AND ETHINYL ESTRADIOL [Suspect]
     Indication: PRODUCT USED FOR UNKNOWN INDICATION
     Route: 048
  3. YASMIN [Suspect]
     Indication: PRODUCT USED FOR UNKNOWN INDICATION
     Dosage: UNK
     Dates: start: 19950101, end: 20080101
  4. ANTI-ASTHMATICS [Concomitant]

REACTIONS (2)
  - PAIN [None]
  - GALLBLADDER DISORDER [None]
